FAERS Safety Report 8433665-8 (Version None)
Quarter: 2012Q2

REPORT INFORMATION
  Report Type: 
  Country: None (occurrence: None)
  Receive Date: 20120323
  Receipt Date: 20110715
  Transmission Date: 20120825
  Serious: Yes (Hospitalization)
  Sender: FDA-Public Use
  Company Number: 163-21880-11062898

PATIENT
  Age: 63 Year
  Sex: Male

DRUGS (12)
  1. LORTAB [Concomitant]
  2. METOPROLOL TARTRATE [Concomitant]
  3. MAGNESIUM (MAGNESIUIM) [Concomitant]
  4. IRON (IRON) [Concomitant]
  5. VIREAD [Concomitant]
  6. ACTOS [Concomitant]
  7. DEXAMETHASONE [Concomitant]
  8. FUROSEMIDE [Concomitant]
  9. ZEMPLAR [Concomitant]
  10. REVLIMID [Suspect]
     Indication: MULTIPLE MYELOMA
     Dosage: 10 MG, DAILY X 21 DAYS, PO 10 MG, DAILY X 21 DAYS THEN 7 DAYS OFF, PO
     Route: 048
     Dates: start: 20110607
  11. REVLIMID [Suspect]
     Indication: MULTIPLE MYELOMA
     Dosage: 10 MG, DAILY X 21 DAYS, PO 10 MG, DAILY X 21 DAYS THEN 7 DAYS OFF, PO
     Route: 048
     Dates: start: 20081210
  12. ACYCLOVIR [Concomitant]

REACTIONS (3)
  - RENAL FAILURE ACUTE [None]
  - DEHYDRATION [None]
  - HYPERKALAEMIA [None]
